FAERS Safety Report 19715732 (Version 2)
Quarter: 2021Q3

REPORT INFORMATION
  Report Type: Spontaneous
  Country: US (occurrence: US)
  Receive Date: 20210818
  Receipt Date: 20210930
  Transmission Date: 20211014
  Serious: No
  Sender: FDA-Public Use
  Company Number: US-ROCHE-2891900

PATIENT
  Sex: Male

DRUGS (1)
  1. OCREVUS [Suspect]
     Active Substance: OCRELIZUMAB
     Indication: MULTIPLE SCLEROSIS
     Dosage: STRENGTH: 300MG/10ML
     Route: 042
     Dates: start: 20210304

REACTIONS (1)
  - Uhthoff^s phenomenon [Unknown]
